FAERS Safety Report 5248328-X (Version None)
Quarter: 2007Q1

REPORT INFORMATION
  Report Type: 
  Country: None (occurrence: None)
  Receive Date: 20070222
  Receipt Date: 20070205
  Transmission Date: 20070707
  Serious: Yes (Death, Life-Threatening, Hospitalization)
  Sender: FDA-Public Use
  Company Number: 236835

PATIENT
  Age: 71 Year
  Sex: Male
  Weight: 75 kg

DRUGS (4)
  1. AVASTIN [Suspect]
     Indication: DRUG USE FOR UNKNOWN INDICATION
     Dosage: 5 MG/KG, Q14D, UNK
     Dates: start: 20060115, end: 20060615
  2. OXALIPLATIN [Concomitant]
  3. FLUOROURACIL [Concomitant]
  4. LEUCOVORIN CALCIUM [Concomitant]

REACTIONS (26)
  - ACTIVATED PARTIAL THROMBOPLASTIN TIME PROLONGED [None]
  - ASCITES [None]
  - ASCITES INFECTION [None]
  - BACTERIAL INFECTION [None]
  - BILE DUCT STENOSIS [None]
  - DUODENAL PERFORATION [None]
  - DUODENAL ULCER [None]
  - ENTEROCOCCAL INFECTION [None]
  - FAECES PALE [None]
  - FISTULA [None]
  - FUNGUS SEROLOGY TEST POSITIVE [None]
  - GASTRIC VARICES [None]
  - HAEMORRHAGE [None]
  - HEPATIC CONGESTION [None]
  - JAUNDICE [None]
  - LOWER GASTROINTESTINAL HAEMORRHAGE [None]
  - MELAENA [None]
  - MULTI-ORGAN FAILURE [None]
  - NAUSEA [None]
  - PERITONEAL PERFORATION [None]
  - PERITONITIS [None]
  - PLATELET COUNT DECREASED [None]
  - PRURITUS [None]
  - URINE COLOUR ABNORMAL [None]
  - VARICES OESOPHAGEAL [None]
  - WHITE BLOOD CELL COUNT DECREASED [None]
